FAERS Safety Report 15464032 (Version 1)
Quarter: 2018Q4

REPORT INFORMATION
  Report Type: Spontaneous
  Country: BR (occurrence: BR)
  Receive Date: 20181004
  Receipt Date: 20181004
  Transmission Date: 20190204
  Serious: Yes (Hospitalization)
  Sender: FDA-Public Use
  Company Number: BR-GLAXOSMITHKLINE-BR2018GSK177985

PATIENT
  Age: 2 Year
  Sex: Male
  Weight: 14 kg

DRUGS (2)
  1. ZINNAT [Suspect]
     Active Substance: CEFUROXIME AXETIL
     Dosage: 4 ML, BID
     Route: 048
     Dates: start: 20180920, end: 20180923
  2. ZINNAT [Suspect]
     Active Substance: CEFUROXIME AXETIL
     Indication: PHARYNGITIS
     Dosage: UNK
     Dates: start: 201804

REACTIONS (6)
  - Respiratory disorder [Unknown]
  - Vomiting [Unknown]
  - Asthma [Unknown]
  - Overdose [Unknown]
  - Product prescribing issue [Unknown]
  - Diarrhoea [Unknown]

NARRATIVE: CASE EVENT DATE: 201804
